FAERS Safety Report 22340916 (Version 1)
Quarter: 2023Q2

REPORT INFORMATION
  Report Type: Spontaneous
  Country: US (occurrence: None)
  Receive Date: 20230517
  Receipt Date: 20230517
  Transmission Date: 20230721
  Serious: Yes (Hospitalization)
  Sender: FDA-Public Use
  Company Number: None

PATIENT
  Age: 38 Year
  Sex: Female

DRUGS (2)
  1. OMALIZUMAB [Suspect]
     Active Substance: OMALIZUMAB
     Indication: Idiopathic urticaria
     Dosage: INJECT 2 SYRINGES UNDER THE SKIN (SUBCUTANEOUS INJECTION) EVERY FOUR WEEKS?
     Route: 058
     Dates: start: 20230126
  2. OMALIZUMAB [Suspect]
     Active Substance: OMALIZUMAB
     Dosage: OTHER QUANTITY : 2 SYRINGES;?FREQUENCY : MONTHLY;?
     Route: 058

REACTIONS (1)
  - Emergency care [None]

NARRATIVE: CASE EVENT DATE: 20230401
